FAERS Safety Report 12471805 (Version 1)
Quarter: 2016Q2

REPORT INFORMATION
  Report Type: Spontaneous
  Country: US (occurrence: None)
  Receive Date: 20160615
  Receipt Date: 20160615
  Transmission Date: 20160815
  Serious: Yes (Hospitalization)
  Sender: FDA-Public Use
  Company Number: None

PATIENT
  Age: 67 Year
  Sex: Male
  Weight: 129 kg

DRUGS (11)
  1. ASPIRIN. [Suspect]
     Active Substance: ASPIRIN
     Indication: CORONARY ARTERY DISEASE
     Dosage: DATE OF USE: CHRONIC
     Route: 048
  2. LASIX [Concomitant]
     Active Substance: FUROSEMIDE
  3. AMARYL [Concomitant]
     Active Substance: GLIMEPIRIDE
  4. PRILOSEC [Concomitant]
     Active Substance: OMEPRAZOLE MAGNESIUM
  5. GLUCOPHAGE [Concomitant]
     Active Substance: METFORMIN HYDROCHLORIDE
  6. LIPITOR [Concomitant]
     Active Substance: ATORVASTATIN CALCIUM
  7. WARFARIN [Suspect]
     Active Substance: WARFARIN
     Indication: ATRIAL FIBRILLATION
     Dosage: DATE OF USE: CHRONIC
     Route: 048
  8. VITAMIN D3 [Concomitant]
     Active Substance: CHOLECALCIFEROL
  9. CLARITIN [Concomitant]
     Active Substance: LORATADINE
  10. K-DUR [Concomitant]
     Active Substance: POTASSIUM CHLORIDE
  11. FLOVENT [Concomitant]
     Active Substance: FLUTICASONE PROPIONATE

REACTIONS (3)
  - Asthenia [None]
  - Microcytic anaemia [None]
  - Haematochezia [None]

NARRATIVE: CASE EVENT DATE: 20151216
